FAERS Safety Report 9716919 (Version 2)
Quarter: 2013Q4

REPORT INFORMATION
  Report Type: Spontaneous
  Country: US (occurrence: US)
  Receive Date: 20131127
  Receipt Date: 20131127
  Transmission Date: 20140711
  Serious: No
  Sender: FDA-Public Use
  Company Number: US-GILEAD-2009-0019886

PATIENT
  Age: 28 Year
  Sex: Female
  Weight: 63.5 kg

DRUGS (6)
  1. LETAIRIS [Suspect]
     Indication: PULMONARY ARTERIAL HYPERTENSION
     Route: 048
     Dates: start: 20081016
  2. LETAIRIS [Suspect]
     Route: 048
     Dates: start: 20081117, end: 20081124
  3. REVATIO [Concomitant]
  4. CARDIZEM CD [Concomitant]
  5. ASPIRIN CHEW [Concomitant]
  6. ZYRTEC [Concomitant]

REACTIONS (4)
  - Eye swelling [Unknown]
  - Swelling face [Unknown]
  - Mood swings [Unknown]
  - Abdominal pain upper [Unknown]
